FAERS Safety Report 13382020 (Version 1)
Quarter: 2017Q1

REPORT INFORMATION
  Report Type: Spontaneous
  Country: US (occurrence: US)
  Receive Date: 20170329
  Receipt Date: 20170329
  Transmission Date: 20170429
  Serious: No
  Sender: FDA-Public Use
  Company Number: None

PATIENT
  Age: 69 Year
  Sex: Female

DRUGS (7)
  1. CALCIUM 600 [Concomitant]
  2. OCALIVA [Suspect]
     Active Substance: OBETICHOLIC ACID
     Indication: FUNGAL INFECTION
     Route: 048
     Dates: start: 20170317
  3. URSODIOL. [Concomitant]
     Active Substance: URSODIOL
  4. PANTOPRAZOLE [Concomitant]
     Active Substance: PANTOPRAZOLE SODIUM
  5. RESTASIS [Concomitant]
     Active Substance: CYCLOSPORINE
  6. VITAMIN D3 [Concomitant]
     Active Substance: CHOLECALCIFEROL
  7. ZANTAC [Concomitant]
     Active Substance: RANITIDINE HYDROCHLORIDE

REACTIONS (1)
  - Pruritus [None]

NARRATIVE: CASE EVENT DATE: 201703
